FAERS Safety Report 19992093 (Version 2)
Quarter: 2021Q4

REPORT INFORMATION
  Report Type: Spontaneous
  Country: CA (occurrence: CA)
  Receive Date: 20211026
  Receipt Date: 20211126
  Transmission Date: 20220303
  Serious: Yes (Hospitalization)
  Sender: FDA-Public Use
  Company Number: CA-BEH-2021137186

PATIENT
  Age: 61 Year
  Sex: Male
  Weight: 104 kg

DRUGS (11)
  1. PRIVIGEN [Suspect]
     Active Substance: HUMAN IMMUNOGLOBULIN G
     Indication: Peripheral sensory neuropathy
     Dosage: 40 GRAM, SINGLE
     Route: 042
     Dates: start: 20201105, end: 20201105
  2. PRIVIGEN [Suspect]
     Active Substance: HUMAN IMMUNOGLOBULIN G
     Indication: Peripheral motor neuropathy
     Dosage: 10 GRAM, SINGLE
     Route: 042
     Dates: start: 20201105, end: 20201105
  3. PRIVIGEN [Suspect]
     Active Substance: HUMAN IMMUNOGLOBULIN G
     Dosage: 40 GRAM, SINGLE
     Route: 042
     Dates: start: 20201106, end: 20201106
  4. PRIVIGEN [Suspect]
     Active Substance: HUMAN IMMUNOGLOBULIN G
     Dosage: 10 GRAM, SINGLE
     Route: 042
     Dates: start: 20201106, end: 20201106
  5. ROSUVASTATIN [Concomitant]
     Active Substance: ROSUVASTATIN
  6. PERINDOPRIL [Concomitant]
     Active Substance: PERINDOPRIL
  7. DULOXETINE [Concomitant]
     Active Substance: DULOXETINE
  8. VITAMIN D;VITAMIN E [Concomitant]
  9. VITAMIN C-E [Concomitant]
  10. FISH OIL [Concomitant]
     Active Substance: FISH OIL
  11. GLUCOSAMINE [Concomitant]
     Active Substance: GLUCOSAMINE

REACTIONS (7)
  - Meningitis aseptic [Recovering/Resolving]
  - Chills [Recovering/Resolving]
  - Hypertension [Recovering/Resolving]
  - Nausea [Recovering/Resolving]
  - Pallor [Recovering/Resolving]
  - Headache [Recovering/Resolving]
  - Pyrexia [Recovering/Resolving]

NARRATIVE: CASE EVENT DATE: 20201106
